FAERS Safety Report 5869798-X (Version None)
Quarter: 2008Q3

REPORT INFORMATION
  Report Type: 
  Country: None (occurrence: None)
  Receive Date: 20080828
  Receipt Date: 20071129
  Transmission Date: 20090109
  Serious: Yes (Hospitalization)
  Sender: FDA-Public Use
  Company Number: 2007-01187FE

PATIENT
  Age: 31 Year
  Sex: Female

DRUGS (4)
  1. MENOTROPINS [Suspect]
     Indication: INFERTILITY
     Dosage: 225 IU, SC
     Route: 058
     Dates: start: 20071027, end: 20071105
  2. PREGNYL [Suspect]
     Indication: INFERTILITY
     Dosage: 5000 IU, SC
     Route: 058
     Dates: start: 20071107, end: 20071107
  3. BUSERELIN [Concomitant]
  4. FOLIC ACID [Concomitant]

REACTIONS (2)
  - BLOOD TEST ABNORMAL [None]
  - OVARIAN HYPERSTIMULATION SYNDROME [None]
